FAERS Safety Report 4407540-X (Version None)
Quarter: 2004Q3

REPORT INFORMATION
  Report Type: 
  Country: None (occurrence: None)
  Receive Date: 20040721
  Receipt Date: 20040708
  Transmission Date: 20050211
  Serious: Yes (Hospitalization)
  Sender: FDA-Public Use
  Company Number: BE-JNJFOC-20040702011

PATIENT
  Age: 28 Year
  Sex: Male

DRUGS (1)
  1. REMICADE [Suspect]
     Indication: ANKYLOSING SPONDYLITIS
     Dosage: INTRAVENOUS
     Route: 042
     Dates: start: 20040528, end: 20040528

REACTIONS (7)
  - BLOOD CULTURE POSITIVE [None]
  - CEREBRAL ISCHAEMIA [None]
  - CONSTIPATION [None]
  - CYTOLYTIC HEPATITIS [None]
  - ENCEPHALITIS [None]
  - PNEUMOCOCCAL INFECTION [None]
  - SINUSITIS [None]
